FAERS Safety Report 7073544-4 (Version None)
Quarter: 2010Q4

REPORT INFORMATION
  Report Type: 
  Country: None (occurrence: None)
  Receive Date: 20101029
  Receipt Date: 20100707
  Transmission Date: 20110411
  Serious: No
  Sender: FDA-Public Use
  Company Number: A0868971A

PATIENT
  Age: 82 Year
  Sex: Female

DRUGS (7)
  1. ADVAIR DISKUS 100/50 [Suspect]
     Indication: BRONCHITIS
     Dosage: 1PUFF PER DAY
     Route: 055
     Dates: start: 20100701, end: 20100702
  2. ATENOLOL [Concomitant]
  3. LEVOTHYROXINE [Concomitant]
  4. TRIAMTERENE [Concomitant]
  5. LEVAQUIN [Concomitant]
  6. ZITHROMAX [Concomitant]
  7. MUCINEX DM [Concomitant]

REACTIONS (2)
  - ABDOMINAL PAIN UPPER [None]
  - OESOPHAGEAL PAIN [None]
